FAERS Safety Report 7203487-4 (Version None)
Quarter: 2010Q4

REPORT INFORMATION
  Report Type: 
  Country: None (occurrence: None)
  Receive Date: 20101230
  Receipt Date: 20101222
  Transmission Date: 20110411
  Serious: Yes (Hospitalization)
  Sender: FDA-Public Use
  Company Number: US-ALEXION-A201001497

PATIENT
  Sex: Male
  Weight: 92.987 kg

DRUGS (10)
  1. SOLIRIS [Suspect]
     Indication: PAROXYSMAL NOCTURNAL HAEMOGLOBINURIA
     Dosage: 900 MG, Q2W
     Route: 042
     Dates: start: 20101028
  2. TESTOSTERONE [Concomitant]
     Dosage: 20 MG, Q2W
  3. BETAPACE [Concomitant]
     Indication: HYPERTENSION
     Dosage: 40 MG, BID
     Route: 048
  4. FOLIC ACID [Concomitant]
     Indication: PAROXYSMAL NOCTURNAL HAEMOGLOBINURIA
     Dosage: 1 MG, QD
     Route: 048
  5. LESCOL                             /01224501/ [Concomitant]
     Indication: BLOOD CHOLESTEROL INCREASED
     Dosage: 80 MG, QD
     Route: 048
  6. MULTI-VITAMINS [Concomitant]
     Indication: VITAMIN SUPPLEMENTATION
     Dosage: 1 TAB, QD
     Route: 048
  7. ASPIRIN [Concomitant]
     Dosage: 325 MG, QD
     Route: 048
  8. FLONASE [Concomitant]
     Indication: NASAL CONGESTION
     Dosage: 2 SPRAYS, QD
     Route: 045
  9. VIAGRA [Concomitant]
     Indication: ERECTILE DYSFUNCTION
     Dosage: 1 TAB, PRN
     Route: 048
  10. NITROSTAT [Concomitant]
     Indication: CHEST PAIN
     Dosage: 0.4 MG, Q 5 MIN PRN
     Route: 060

REACTIONS (1)
  - ATRIAL FLUTTER [None]
